FAERS Safety Report 21447598 (Version 4)
Quarter: 2023Q4

REPORT INFORMATION
  Report Type: Spontaneous
  Country: IN (occurrence: IN)
  Receive Date: 20221012
  Receipt Date: 20231113
  Transmission Date: 20240109
  Serious: Yes (Other)
  Sender: FDA-Public Use
  Company Number: IN-PFIZER INC-PV202200079036

PATIENT
  Age: 54 Year
  Sex: Female

DRUGS (4)
  1. PALBOCICLIB [Suspect]
     Active Substance: PALBOCICLIB
     Indication: Breast cancer metastatic
     Dosage: 125 MG, 1X/DAY
     Route: 048
     Dates: start: 20211224
  2. LETROZOLE [Concomitant]
     Active Substance: LETROZOLE
     Indication: Breast cancer metastatic
     Dosage: 2.5 MG 0-1-0 X 1M
  3. CALCIUM CARBONATE\CHOLECALCIFEROL [Concomitant]
     Active Substance: CALCIUM CARBONATE\CHOLECALCIFEROL
     Dosage: 500 MG 0-1-0 X 1M
  4. FULVESTRANT [Concomitant]
     Active Substance: FULVESTRANT
     Dosage: 500 MG, MONTHLY
     Route: 030
     Dates: start: 202304

REACTIONS (3)
  - Tooth disorder [Unknown]
  - Neoplasm progression [Unknown]
  - Rash pruritic [Unknown]
